FAERS Safety Report 15961877 (Version 3)
Quarter: 2019Q1

REPORT INFORMATION
  Report Type: Report from Study
  Country: CA (occurrence: CA)
  Receive Date: 20190214
  Receipt Date: 20190228
  Transmission Date: 20190417
  Serious: Yes (Other)
  Sender: FDA-Public Use
  Company Number: PHHY2018CA119541

PATIENT
  Age: 60 Year
  Sex: Female

DRUGS (10)
  1. COSENTYX [Suspect]
     Active Substance: SECUKINUMAB
     Dosage: 300 MG, QMO
     Route: 058
  2. CALCIPOTRIENE AND BETAMETHASONE DIPROPIONATE [Concomitant]
     Active Substance: BETAMETHASONE DIPROPIONATE\CALCIPOTRIENE
     Indication: PRODUCT USED FOR UNKNOWN INDICATION
     Dosage: UNK
     Route: 065
  3. SILKIS [Concomitant]
     Active Substance: CALCITRIOL
     Indication: PRODUCT USED FOR UNKNOWN INDICATION
     Route: 065
  4. METHOTREXATE. [Suspect]
     Active Substance: METHOTREXATE
     Indication: PRODUCT USED FOR UNKNOWN INDICATION
     Dosage: UNK
     Route: 065
  5. CLOBETASOL [Concomitant]
     Active Substance: CLOBETASOL
     Indication: PRODUCT USED FOR UNKNOWN INDICATION
     Dosage: UNK
     Route: 065
     Dates: start: 20180824
  6. COSENTYX [Suspect]
     Active Substance: SECUKINUMAB
     Indication: PSORIASIS
     Dosage: 300 MG, QW (FOR 0, 1, 2, 3  WEEKS)
     Route: 058
     Dates: start: 20180925
  7. HUMIRA [Concomitant]
     Active Substance: ADALIMUMAB
     Indication: PRODUCT USED FOR UNKNOWN INDICATION
     Route: 065
  8. PROTOPIC [Concomitant]
     Active Substance: TACROLIMUS
     Indication: PRODUCT USED FOR UNKNOWN INDICATION
     Route: 065
  9. ACITRETIN. [Concomitant]
     Active Substance: ACITRETIN
     Indication: PRODUCT USED FOR UNKNOWN INDICATION
     Dosage: UNK
     Route: 065
  10. COSENTYX [Suspect]
     Active Substance: SECUKINUMAB
     Dosage: 300 MG, QW
     Route: 058
     Dates: start: 20181009

REACTIONS (31)
  - Nasopharyngitis [Unknown]
  - Fatigue [Not Recovered/Not Resolved]
  - Respiratory tract congestion [Unknown]
  - Inflammation [Unknown]
  - Dysgeusia [Unknown]
  - Sinus congestion [Unknown]
  - Oropharyngeal pain [Unknown]
  - Stress [Unknown]
  - Infectious thyroiditis [Unknown]
  - Bronchitis chronic [Unknown]
  - Concomitant disease aggravated [Unknown]
  - Cough [Unknown]
  - Abdominal infection [Unknown]
  - Urticaria [Unknown]
  - Eye disorder [Unknown]
  - Chest discomfort [Unknown]
  - Concomitant disease aggravated [Unknown]
  - Fungal infection [Unknown]
  - Blood pressure increased [Unknown]
  - Flushing [Unknown]
  - Diarrhoea [Unknown]
  - Viral infection [Unknown]
  - Eye pain [Unknown]
  - Throat irritation [Unknown]
  - Chills [Unknown]
  - Corneal abrasion [Unknown]
  - Oral fungal infection [Unknown]
  - Feeling abnormal [Unknown]
  - Pyrexia [Unknown]
  - Chest pain [Unknown]
  - Blepharitis [Unknown]

NARRATIVE: CASE EVENT DATE: 20180925
